FAERS Safety Report 13671619 (Version 1)
Quarter: 2017Q2

REPORT INFORMATION
  Report Type: Spontaneous
  Country: US (occurrence: US)
  Receive Date: 20170620
  Receipt Date: 20170620
  Transmission Date: 20170830
  Serious: No
  Sender: FDA-Public Use
  Company Number: US-ROCHE-1400051

PATIENT
  Sex: Female

DRUGS (8)
  1. ASPIRIN. [Concomitant]
     Active Substance: ASPIRIN
  2. ZANTAC [Concomitant]
     Active Substance: RANITIDINE HYDROCHLORIDE
  3. CLARITIN [Concomitant]
     Active Substance: LORATADINE
  4. XELODA [Suspect]
     Active Substance: CAPECITABINE
     Indication: BREAST CANCER
     Dosage: 1500 MG AM?1000 MG PM, 14 DAYS ON 7 DAYS OFF
     Route: 048
     Dates: start: 20140504
  5. ZOLOFT [Concomitant]
     Active Substance: SERTRALINE HYDROCHLORIDE
  6. MICARDIS [Concomitant]
     Active Substance: TELMISARTAN
  7. XELODA [Suspect]
     Active Substance: CAPECITABINE
     Dosage: 1500 MG AM?1000 MG PM, 14 DAYS ON 7 DAYS OFF
     Route: 048
     Dates: start: 20140504
  8. VITAMIN C [Concomitant]
     Active Substance: ASCORBIC ACID

REACTIONS (2)
  - Dysphagia [Not Recovered/Not Resolved]
  - Dyspepsia [Unknown]
